FAERS Safety Report 10040061 (Version 1)
Quarter: 2014Q1

REPORT INFORMATION
  Report Type: Spontaneous
  Country: US (occurrence: US)
  Receive Date: 20140326
  Receipt Date: 20140326
  Transmission Date: 20141002
  Serious: Yes (Other)
  Sender: FDA-Public Use
  Company Number: US-PFIZER INC-2014079036

PATIENT
  Age: 58 Year
  Sex: 0

DRUGS (2)
  1. ZITHROMAX [Suspect]
     Dosage: UNK
     Route: 048
     Dates: start: 20130213
  2. AZITHROMYCIN [Suspect]
     Dosage: UNK
     Route: 048
     Dates: start: 20130213

REACTIONS (1)
  - Atrial fibrillation [Unknown]
